FAERS Safety Report 7986741-8 (Version None)
Quarter: 2011Q4

REPORT INFORMATION
  Report Type: 
  Country: None (occurrence: None)
  Receive Date: 20111216
  Receipt Date: 20110218
  Transmission Date: 20120403
  Serious: Yes (Other)
  Sender: FDA-Public Use
  Company Number: US-BRISTOL-MYERS SQUIBB COMPANY-15559008

PATIENT
  Age: 24 Year
  Sex: Male

DRUGS (2)
  1. XOPENEX [Concomitant]
  2. ABILIFY [Suspect]
     Indication: PSYCHOTIC DISORDER
     Dosage: DOSE INCREASED AND THEN DECREASED TO 2MG

REACTIONS (6)
  - CATATONIA [None]
  - YAWNING [None]
  - RETCHING [None]
  - TREMOR [None]
  - MOOD SWINGS [None]
  - DYSPNOEA [None]
